FAERS Safety Report 8859660 (Version 1)
Quarter: 2012Q4

REPORT INFORMATION
  Report Type: 
  Country: US (occurrence: US)
  Receive Date: 20121025
  Receipt Date: 20121025
  Transmission Date: 20130627
  Serious: Yes (Hospitalization)
  Sender: FDA-Public Use
  Company Number: US-BAYER-2012-111050

PATIENT
  Age: 64 Year
  Sex: Female

DRUGS (1)
  1. SORAFENIB (RAF KINASE INHIBITOR) [Suspect]
     Indication: NEOPLASM OF UNSPECIFIED NATURE OF RESPIRATORY SYSTEM
     Dosage: 400 mg, BID
     Route: 048
     Dates: start: 20120729, end: 20120924

REACTIONS (3)
  - Diarrhoea [None]
  - Dehydration [None]
  - Blood glucose fluctuation [None]
